FAERS Safety Report 23768048 (Version 1)
Quarter: 2024Q2

REPORT INFORMATION
  Report Type: Spontaneous
  Country: US (occurrence: US)
  Receive Date: 20240422
  Receipt Date: 20240422
  Transmission Date: 20240716
  Serious: No
  Sender: FDA-Public Use
  Company Number: US-GSKCCFUS-Case-01991595_AE-110572

PATIENT
  Sex: Male

DRUGS (1)
  1. JEMPERLI [Suspect]
     Active Substance: DOSTARLIMAB-GXLY
     Indication: Colorectal cancer
     Dosage: 500 MG,SINGLE DOSE VIAL
     Route: 050

REACTIONS (2)
  - Chills [Recovered/Resolved]
  - Product use in unapproved indication [Unknown]
